FAERS Safety Report 17916171 (Version 1)
Quarter: 2020Q2

REPORT INFORMATION
  Report Type: Spontaneous
  Country: CA (occurrence: CA)
  Receive Date: 20200619
  Receipt Date: 20200619
  Transmission Date: 20200714
  Serious: Yes (Life-Threatening, Hospitalization)
  Sender: FDA-Public Use
  Company Number: CA-TEVA-2020-CA-1789741

PATIENT
  Age: 19 Year
  Sex: Female
  Weight: 87 kg

DRUGS (2)
  1. ETHINYLESTRADIOL W/LEVONORGESTREL [Suspect]
     Active Substance: ETHINYL ESTRADIOL\LEVONORGESTREL
     Indication: CONTRACEPTION
     Route: 048
  2. XARELTO [Suspect]
     Active Substance: RIVAROXABAN
     Indication: PRODUCT USED FOR UNKNOWN INDICATION
     Route: 065

REACTIONS (7)
  - Menorrhagia [Unknown]
  - Heart rate increased [Unknown]
  - Vertigo [Unknown]
  - Hypotension [Unknown]
  - Emergency care examination [Unknown]
  - Anaemia [Unknown]
  - Pulmonary embolism [Unknown]
